FAERS Safety Report 9855218 (Version 6)
Quarter: 2015Q2

REPORT INFORMATION
  Report Type: Spontaneous
  Country: US (occurrence: US)
  Receive Date: 20140130
  Receipt Date: 20150416
  Transmission Date: 20150821
  Serious: Yes (Hospitalization, Other)
  Sender: FDA-Public Use
  Company Number: US-009507513-1401USA012014

PATIENT
  Sex: Female
  Weight: 78 kg

DRUGS (3)
  1. ALENDRONATE SODIUM. [Suspect]
     Active Substance: ALENDRONATE SODIUM
     Dosage: 70 MG, QW
     Route: 048
     Dates: start: 20090323, end: 20101120
  2. FOSAMAX [Suspect]
     Active Substance: ALENDRONATE SODIUM
     Dosage: UNK
     Route: 048
     Dates: start: 1995, end: 2010
  3. FOSAMAX [Suspect]
     Active Substance: ALENDRONATE SODIUM
     Indication: OSTEOPOROSIS
     Dosage: 70 MG, QW
     Route: 048
     Dates: start: 20040710, end: 2010

REACTIONS (15)
  - Hip fracture [Unknown]
  - Intramedullary rod insertion [Unknown]
  - Osteoarthritis [Unknown]
  - Drug ineffective [Unknown]
  - Pain in extremity [Unknown]
  - Femur fracture [Unknown]
  - Anaemia [Unknown]
  - Osteopenia [Unknown]
  - Blood cholesterol increased [Unknown]
  - Femur fracture [Unknown]
  - Surgery [Unknown]
  - Back pain [Unknown]
  - Hypertension [Unknown]
  - Gait disturbance [Unknown]
  - Arthralgia [Unknown]

NARRATIVE: CASE EVENT DATE: 20101225
